FAERS Safety Report 5699609-7 (Version None)
Quarter: 2008Q2

REPORT INFORMATION
  Report Type: 
  Country: None (occurrence: None)
  Receive Date: 20080408
  Receipt Date: 20080408
  Transmission Date: 20081010
  Serious: No
  Sender: FDA-Public Use
  Company Number: None

PATIENT
  Age: 14 Year
  Sex: Male
  Weight: 56.6996 kg

DRUGS (2)
  1. SINGULAIR [Suspect]
     Indication: ASTHMA
     Dosage: 1 PER DAY
     Dates: start: 20070201, end: 20080406
  2. SINGULAIR [Suspect]
     Indication: MULTIPLE ALLERGIES
     Dosage: 1 PER DAY
     Dates: start: 20070201, end: 20080406

REACTIONS (14)
  - ACNE [None]
  - AGGRESSION [None]
  - ANXIETY [None]
  - DEPRESSION [None]
  - FEELING ABNORMAL [None]
  - HEADACHE [None]
  - HOMICIDAL IDEATION [None]
  - IMMUNOSUPPRESSION [None]
  - INSOMNIA [None]
  - RASH [None]
  - SELF-INJURIOUS IDEATION [None]
  - SENSORY DISTURBANCE [None]
  - SKIN PAPILLOMA [None]
  - STRESS [None]
